FAERS Safety Report 8168609-X (Version None)
Quarter: 2012Q1

REPORT INFORMATION
  Report Type: 
  Country: None (occurrence: None)
  Receive Date: 20120227
  Receipt Date: 20120217
  Transmission Date: 20120608
  Serious: Yes (Hospitalization)
  Sender: FDA-Public Use
  Company Number: US-PURDUE-USA-2011-0078095

PATIENT
  Sex: Female
  Weight: 59.42 kg

DRUGS (19)
  1. STUDY DRUG [Suspect]
     Indication: PROPHYLAXIS
     Dosage: UNK
     Dates: start: 20090512, end: 20090707
  2. LORTAB [Suspect]
     Indication: ANALGESIC THERAPY
     Dosage: 1 DF, Q6H PRN
     Dates: start: 20090402, end: 20090629
  3. SIMVASTATIN [Suspect]
     Indication: BLOOD CHOLESTEROL
     Dosage: 80 MG, DAILY
     Dates: start: 20090227, end: 20090828
  4. ARTIFICIAL TEARS                   /00445101/ [Concomitant]
     Indication: DRY EYE
     Dosage: 1 GTT, QID
     Route: 047
     Dates: start: 20090309
  5. RANITIDINE [Suspect]
     Indication: ULCER
     Dosage: 300 MG, DAILY
     Dates: end: 20090828
  6. ZOFRAN [Suspect]
     Indication: NAUSEA
     Dosage: 1 DF, Q6H PRN
     Route: 048
     Dates: end: 20090828
  7. ASPIRIN [Concomitant]
     Indication: HYPERTENSION
  8. PIOGLITAZONE HYDROCHLORIDE [Suspect]
     Indication: DIABETES MELLITUS
     Dosage: 30 MG, DAILY
     Route: 048
     Dates: start: 20070604
  9. ACTONEL [Concomitant]
     Indication: OSTEOPOROSIS
     Dosage: 35 MG, WEEKLY
  10. FERGON [Suspect]
     Indication: IRON DEFICIENCY
     Dosage: 650 MG, DAILY
     Route: 048
     Dates: start: 20090227, end: 20090828
  11. SUNITINIB MALATE [Suspect]
     Indication: RENAL CANCER
     Dosage: 100 MG, DAILY
     Dates: start: 20090601, end: 20090828
  12. ASPIRIN [Concomitant]
     Indication: PAIN IN EXTREMITY
     Dosage: 81 MG, DAILY
     Dates: end: 20090828
  13. ASPIRIN [Concomitant]
     Indication: ARTHRALGIA
  14. TYLENOL (CAPLET) [Concomitant]
     Indication: PRODUCT USED FOR UNKNOWN INDICATION
     Dosage: 500 MG, PRN
     Route: 048
  15. COLACE CAPSULES [Suspect]
     Indication: CONSTIPATION
     Dosage: 200 MG, DAILY
     Dates: start: 20090402, end: 20090828
  16. LORTAB [Suspect]
     Dosage: 1 DF, Q6H PRN
     Dates: start: 20090825, end: 20090828
  17. MEGACE [Suspect]
     Indication: APPETITE DISORDER
     Dosage: 3 DF, DAILY
     Route: 048
  18. CIPRO [Concomitant]
     Indication: PRODUCT USED FOR UNKNOWN INDICATION
     Dosage: 1000MG/10ML TWICE DAILY
  19. RADIATION [Suspect]
     Indication: PRODUCT USED FOR UNKNOWN INDICATION
     Dosage: EVERY DAY, FIVE DAYS A WEEK FOR THREE WEEKS
     Dates: start: 20090316, end: 20090406

REACTIONS (6)
  - COGNITIVE DISORDER [None]
  - MALAISE [None]
  - HEADACHE [None]
  - VOMITING [None]
  - FATIGUE [None]
  - ABDOMINAL PAIN [None]
